FAERS Safety Report 18422223 (Version 3)
Quarter: 2020Q4

REPORT INFORMATION
  Report Type: Spontaneous
  Country: FR (occurrence: FR)
  Receive Date: 20201023
  Receipt Date: 20201211
  Transmission Date: 20210114
  Serious: Yes (Other)
  Sender: FDA-Public Use
  Company Number: FR-GILEAD-2020-0500508

PATIENT
  Sex: Female

DRUGS (2)
  1. AXICABTAGENE CILOLEUCEL [Suspect]
     Active Substance: AXICABTAGENE CILOLEUCEL
     Indication: PRODUCT USED FOR UNKNOWN INDICATION
     Dosage: UNK
     Route: 065
     Dates: start: 20201014, end: 20201014
  2. DIMETHYL SULFOXIDE. [Suspect]
     Active Substance: DIMETHYL SULFOXIDE
     Indication: UNEVALUABLE EVENT
     Dosage: UNK
     Route: 042
     Dates: start: 20201014, end: 20201014

REACTIONS (3)
  - Anaphylactic shock [Unknown]
  - Seizure [Unknown]
  - Cardiac arrest [Unknown]

NARRATIVE: CASE EVENT DATE: 20201014
